FAERS Safety Report 4959858-X (Version None)
Quarter: 2006Q1

REPORT INFORMATION
  Report Type: 
  Country: None (occurrence: None)
  Receive Date: 20060331
  Receipt Date: 20050803
  Transmission Date: 20060701
  Serious: Yes (Hospitalization)
  Sender: FDA-Public Use
  Company Number: US-MERCK-0508USA01259

PATIENT
  Age: 44 Year
  Sex: Male
  Weight: 105 kg

DRUGS (6)
  1. VIOXX [Suspect]
     Indication: MONARTHRITIS
     Route: 048
     Dates: start: 20000101, end: 20020101
  2. VIOXX [Suspect]
     Route: 048
     Dates: start: 20020101, end: 20020401
  3. VIOXX [Suspect]
     Route: 048
     Dates: start: 20020401, end: 20020501
  4. VIOXX [Suspect]
     Route: 048
     Dates: start: 20020501, end: 20040501
  5. LOTREL [Concomitant]
     Route: 065
  6. GLYBURIDE [Concomitant]
     Route: 065

REACTIONS (45)
  - ABDOMINAL PAIN UPPER [None]
  - ACCELERATED HYPERTENSION [None]
  - ACUTE CORONARY SYNDROME [None]
  - ANGINA PECTORIS [None]
  - ANGINA UNSTABLE [None]
  - ANXIETY [None]
  - ASTHMA [None]
  - ATRIAL FIBRILLATION [None]
  - BACK PAIN [None]
  - BLOOD CREATINE PHOSPHOKINASE INCREASED [None]
  - BRONCHITIS [None]
  - BURNING SENSATION [None]
  - CARDIAC DISORDER [None]
  - CERVICAL SPINAL STENOSIS [None]
  - CHEST PAIN [None]
  - CHRONIC OBSTRUCTIVE PULMONARY DISEASE [None]
  - CORONARY ARTERY DISEASE [None]
  - DYSPEPSIA [None]
  - DYSPHAGIA [None]
  - DYSPNOEA [None]
  - ERECTILE DYSFUNCTION [None]
  - FALL [None]
  - FRACTURED SACRUM [None]
  - HAEMATOCHEZIA [None]
  - HYPERCHOLESTEROLAEMIA [None]
  - HYPERKERATOSIS [None]
  - HYPERLIPIDAEMIA [None]
  - HYPERTENSIVE HEART DISEASE [None]
  - HYPOAESTHESIA [None]
  - ILIAC ARTERY OCCLUSION [None]
  - INTERMITTENT CLAUDICATION [None]
  - ISCHAEMIC CARDIOMYOPATHY [None]
  - LEUKOCYTOSIS [None]
  - LIMB DISCOMFORT [None]
  - MUSCLE SPASMS [None]
  - MUSCULOSKELETAL CHEST PAIN [None]
  - MYOCARDIAL INFARCTION [None]
  - NECK INJURY [None]
  - NON-CARDIAC CHEST PAIN [None]
  - PAIN IN EXTREMITY [None]
  - RECTAL HAEMORRHAGE [None]
  - TINNITUS [None]
  - TRACHEOBRONCHITIS [None]
  - WOUND DEHISCENCE [None]
  - WOUND INFECTION [None]
